FAERS Safety Report 19364381 (Version 1)
Quarter: 2021Q2

REPORT INFORMATION
  Report Type: Spontaneous
  Country: US (occurrence: US)
  Receive Date: 20210602
  Receipt Date: 20210602
  Transmission Date: 20210717
  Serious: Yes (Life-Threatening, Other)
  Sender: FDA-Public Use
  Company Number: None

PATIENT
  Age: 74 Year
  Sex: Female
  Weight: 54 kg

DRUGS (15)
  1. SERTRALINE [Concomitant]
     Active Substance: SERTRALINE HYDROCHLORIDE
  2. VEGAN OMEGA?3 [Concomitant]
  3. DILTIAZEM 24HR ER 180MG CAP [Suspect]
     Active Substance: DILTIAZEM
     Indication: HYPERTENSION
     Dosage: ?          QUANTITY:1 CAPSULE(S);?
     Dates: start: 20210503, end: 20210527
  4. LEVOTHYROXINE. [Concomitant]
     Active Substance: LEVOTHYROXINE
  5. COLCHICINE. [Concomitant]
     Active Substance: COLCHICINE
  6. DILTIAZEM 24HR ER 180MG CAP [Suspect]
     Active Substance: DILTIAZEM
     Indication: ATRIAL FIBRILLATION
     Dosage: ?          QUANTITY:1 CAPSULE(S);?
     Dates: start: 20210503, end: 20210527
  7. ATORVASTATIN [Concomitant]
     Active Substance: ATORVASTATIN
  8. VEGAN SUPPLEMENTS [Concomitant]
  9. AREDS PPRESERVISION [Concomitant]
  10. DESICCATED BLUEBERRY + TART CHERRY CAPSULES [Concomitant]
  11. DILTIAZEM 24HR ER 180MG CAP [Suspect]
     Active Substance: DILTIAZEM
     Indication: CHEST PAIN
     Dosage: ?          QUANTITY:1 CAPSULE(S);?
     Dates: start: 20210503, end: 20210527
  12. FLECAINIDE [Concomitant]
     Active Substance: FLECAINIDE
  13. TRIAMTERENE AND HYDROCHLOROTHIAZIDE [Concomitant]
     Active Substance: HYDROCHLOROTHIAZIDE\TRIAMTERENE
  14. RESTASIS [Concomitant]
     Active Substance: CYCLOSPORINE
  15. COENZYME Q10 [Concomitant]
     Active Substance: DIETARY SUPPLEMENT\UBIDECARENONE

REACTIONS (4)
  - Stevens-Johnson syndrome [None]
  - Drug reaction with eosinophilia and systemic symptoms [None]
  - Rash [None]
  - Toxic epidermal necrolysis [None]

NARRATIVE: CASE EVENT DATE: 20210527
